FAERS Safety Report 9944869 (Version 1)
Quarter: 2014Q1

REPORT INFORMATION
  Report Type: Report from Study
  Country: US (occurrence: US)
  Receive Date: 20140303
  Receipt Date: 20140303
  Transmission Date: 20141002
  Serious: No
  Sender: FDA-Public Use
  Company Number: US-ABBVIE-13P-163-1052382-00

PATIENT
  Age: 16 Year
  Sex: Male

DRUGS (3)
  1. HUMIRA [Suspect]
     Indication: JUVENILE IDIOPATHIC ARTHRITIS
     Route: 058
     Dates: start: 20130217
  2. SULFASALAZINE [Concomitant]
     Indication: JUVENILE IDIOPATHIC ARTHRITIS
     Dosage: 2 TABLETS IN THE AM AND 2 TABLETS IN THE PM
     Route: 048
  3. NAPROXEN [Concomitant]
     Indication: PAIN
     Route: 048

REACTIONS (2)
  - Injection site papule [Not Recovered/Not Resolved]
  - Injection site pruritus [Not Recovered/Not Resolved]
